FAERS Safety Report 19399522 (Version 2)
Quarter: 2021Q2

REPORT INFORMATION
  Report Type: Spontaneous
  Country: CN (occurrence: CN)
  Receive Date: 20210610
  Receipt Date: 20210611
  Transmission Date: 20210717
  Serious: Yes (Other)
  Sender: FDA-Public Use
  Company Number: CN-ASTRAZENECA-2021A496566

PATIENT
  Age: 63 Year
  Sex: Female

DRUGS (2)
  1. IRESSA [Suspect]
     Active Substance: GEFITINIB
     Indication: NON-SMALL CELL LUNG CANCER
     Route: 048
  2. IRESSA [Suspect]
     Active Substance: GEFITINIB
     Indication: METASTASES TO BONE
     Route: 048

REACTIONS (8)
  - Recurrent cancer [Unknown]
  - Acquired gene mutation [Unknown]
  - Alopecia [Recovered/Resolved]
  - Bone pain [Unknown]
  - Dyspepsia [Recovered/Resolved]
  - Back pain [Unknown]
  - Drug resistance [Unknown]
  - Diarrhoea [Not Recovered/Not Resolved]
